FAERS Safety Report 14828270 (Version 1)
Quarter: 2018Q2

REPORT INFORMATION
  Report Type: Spontaneous
  Country: FR (occurrence: FR)
  Receive Date: 20180430
  Receipt Date: 20180430
  Transmission Date: 20180711
  Serious: Yes (Hospitalization)
  Sender: FDA-Public Use
  Company Number: FR-JNJFOC-20180431723

PATIENT
  Age: 81 Year
  Sex: Male

DRUGS (8)
  1. AVODART [Concomitant]
     Active Substance: DUTASTERIDE
     Route: 048
  2. BISOPROLOL [Concomitant]
     Active Substance: BISOPROLOL
     Route: 048
  3. BROMAZEPAM [Concomitant]
     Active Substance: BROMAZEPAM
     Route: 048
  4. ROSUVASTATINE [Concomitant]
     Active Substance: ROSUVASTATIN
     Route: 048
  5. ONBREZ BREEZHALER [Concomitant]
     Active Substance: INDACATEROL
     Route: 055
  6. PAROXETINE. [Concomitant]
     Active Substance: PAROXETINE
     Route: 048
  7. IMBRUVICA [Suspect]
     Active Substance: IBRUTINIB
     Indication: LYMPHOMA
     Route: 048
     Dates: start: 201505
  8. LANSOPRAZOLE. [Concomitant]
     Active Substance: LANSOPRAZOLE
     Route: 048

REACTIONS (1)
  - Cardiac failure [Not Recovered/Not Resolved]

NARRATIVE: CASE EVENT DATE: 201712
